FAERS Safety Report 4709582-3 (Version None)
Quarter: 2005Q3

REPORT INFORMATION
  Report Type: 
  Country: None (occurrence: None)
  Receive Date: 20050707
  Receipt Date: 20050615
  Transmission Date: 20060218
  Serious: Yes (Hospitalization, Other)
  Sender: FDA-Public Use
  Company Number: US_0411107837

PATIENT
  Age: 51 Year
  Sex: Male
  Weight: 153 kg

DRUGS (18)
  1. ZYPREXA [Suspect]
     Indication: DEPRESSION
     Dosage: 25 MG AT BEDTIME
     Dates: start: 20000522, end: 20040715
  2. GLUCOPHAGE [Concomitant]
  3. ZOCOR [Concomitant]
  4. HYDROCHLOROTHIAZIDE [Concomitant]
  5. DIVALPROEX SODIUM [Concomitant]
  6. VALPROIC ACID [Concomitant]
  7. CALAN [Concomitant]
  8. DIOVAN [Concomitant]
  9. LIPITOR [Concomitant]
  10. PROPOXYPHENE HCL [Concomitant]
  11. ATENOLOL [Concomitant]
  12. ACTOS [Concomitant]
  13. ZESTRIL [Concomitant]
  14. WELLBUTRIN [Concomitant]
  15. LOTREL [Concomitant]
  16. ALTAC (RAMIPRIL [Concomitant]
  17. SEROQUEL [Concomitant]
  18. LITHIUM CARBONATE [Concomitant]

REACTIONS (12)
  - BLOOD CHOLESTEROL ABNORMAL [None]
  - CHEST PAIN [None]
  - DIABETES MELLITUS [None]
  - DIABETES MELLITUS INADEQUATE CONTROL [None]
  - ERECTILE DYSFUNCTION [None]
  - GLYCOSYLATED HAEMOGLOBIN INCREASED [None]
  - HYPERGLYCAEMIA [None]
  - HYPERTENSION [None]
  - PRESCRIBED OVERDOSE [None]
  - PROTEINURIA [None]
  - RENAL FAILURE CHRONIC [None]
  - TREATMENT NONCOMPLIANCE [None]
